FAERS Safety Report 7145476-4 (Version None)
Quarter: 2010Q4

REPORT INFORMATION
  Report Type: 
  Country: None (occurrence: None)
  Receive Date: 20101208
  Receipt Date: 20101202
  Transmission Date: 20110411
  Serious: Yes (Hospitalization)
  Sender: FDA-Public Use
  Company Number: LK-ROCHE-746181

PATIENT
  Sex: Female

DRUGS (10)
  1. CEFTRIAXONE [Suspect]
     Indication: PNEUMONIA
     Route: 048
  2. APIXABAN [Suspect]
     Indication: THROMBOSIS PROPHYLAXIS
     Route: 048
     Dates: start: 20080925, end: 20100914
  3. WARFARIN SODIUM [Suspect]
     Indication: THROMBOSIS PROPHYLAXIS
     Route: 048
     Dates: start: 20080925, end: 20100914
  4. WARFARIN SODIUM [Suspect]
     Route: 048
  5. LEVOFLOXACIN [Suspect]
     Indication: PNEUMONIA
     Route: 048
  6. SPIRONOLACTONE [Concomitant]
     Dates: start: 20080911
  7. DIGOXIN [Concomitant]
     Dates: start: 20080911
  8. LOSARTAN [Concomitant]
     Dates: start: 20080717
  9. FUROSEMIDE [Concomitant]
     Dates: start: 20100925
  10. LEVOTHYROXINE SODIUM [Concomitant]
     Dates: start: 20080101

REACTIONS (3)
  - CARDIAC FAILURE CONGESTIVE [None]
  - PNEUMONIA [None]
  - RASH ERYTHEMATOUS [None]
